FAERS Safety Report 18116143 (Version 1)
Quarter: 2020Q3

REPORT INFORMATION
  Report Type: Spontaneous
  Country: US (occurrence: US)
  Receive Date: 20200805
  Receipt Date: 20200805
  Transmission Date: 20201103
  Serious: No
  Sender: FDA-Public Use
  Company Number: US-INSUD PHARMA-2007US00177

PATIENT

DRUGS (1)
  1. ISIBLOOM [Suspect]
     Active Substance: DESOGESTREL\ETHINYL ESTRADIOL
     Indication: MENSTRUATION IRREGULAR
     Dosage: 1 TABLET DAILY
     Route: 048
     Dates: start: 202006

REACTIONS (6)
  - Breast enlargement [Unknown]
  - Breast swelling [Not Recovered/Not Resolved]
  - Insomnia [Unknown]
  - Breast pain [Not Recovered/Not Resolved]
  - Breast tenderness [Not Recovered/Not Resolved]
  - Intentional product use issue [Unknown]

NARRATIVE: CASE EVENT DATE: 202006
